FAERS Safety Report 25617104 (Version 1)
Quarter: 2025Q3

REPORT INFORMATION
  Report Type: Report from Study
  Country: CN (occurrence: CN)
  Receive Date: 20250729
  Receipt Date: 20250729
  Transmission Date: 20251021
  Serious: Yes (Death, Other)
  Sender: ROCHE
  Company Number: CN-ROCHE-10000348359

PATIENT

DRUGS (10)
  1. RITUXIMAB [Suspect]
     Active Substance: RITUXIMAB
     Indication: Lymphoma AIDS related
     Route: 065
  2. METHOTREXATE [Suspect]
     Active Substance: METHOTREXATE
     Indication: Lymphoma AIDS related
     Route: 065
  3. DEXAMETHASONE [Suspect]
     Active Substance: DEXAMETHASONE
     Indication: Lymphoma AIDS related
     Route: 065
  4. CYCLOPHOSPHAMIDE [Suspect]
     Active Substance: CYCLOPHOSPHAMIDE
     Indication: Lymphoma AIDS related
     Route: 065
  5. VINCRISTINE [Suspect]
     Active Substance: VINCRISTINE
     Indication: Lymphoma AIDS related
     Route: 065
  6. DOXORUBICIN [Suspect]
     Active Substance: DOXORUBICIN
     Indication: Lymphoma AIDS related
     Route: 065
  7. PREDNISONE [Suspect]
     Active Substance: PREDNISONE
     Indication: Lymphoma AIDS related
     Route: 065
  8. IFOSFAMIDE [Suspect]
     Active Substance: IFOSFAMIDE
     Indication: Lymphoma AIDS related
     Route: 065
  9. ETOPOSIDE [Suspect]
     Active Substance: ETOPOSIDE
     Indication: Lymphoma AIDS related
     Route: 065
  10. CYTARABINE [Suspect]
     Active Substance: CYTARABINE
     Indication: Lymphoma AIDS related
     Route: 065

REACTIONS (21)
  - Pneumonia [Fatal]
  - Septic shock [Fatal]
  - White blood cell count decreased [Unknown]
  - Pyrexia [Unknown]
  - Platelet count decreased [Unknown]
  - Infection [Unknown]
  - Neutropenia [Unknown]
  - Anaemia [Unknown]
  - Fatigue [Unknown]
  - Nausea [Unknown]
  - Decreased appetite [Unknown]
  - Nervous system disorder [Unknown]
  - Transaminases increased [Unknown]
  - Renal disorder [Unknown]
  - Agranulocytosis [Unknown]
  - Weight decreased [Unknown]
  - Vomiting [Unknown]
  - Cardiac disorder [Unknown]
  - Hypoalbuminaemia [Unknown]
  - Blood bilirubin increased [Unknown]
  - Skin disorder [Unknown]
